FAERS Safety Report 8021675-4 (Version None)
Quarter: 2012Q1

REPORT INFORMATION
  Report Type: 
  Country: None (occurrence: None)
  Receive Date: 20120104
  Receipt Date: 20111222
  Transmission Date: 20120608
  Serious: Yes (Hospitalization, Other)
  Sender: FDA-Public Use
  Company Number: PHFR2011IE06057

PATIENT
  Sex: Female

DRUGS (4)
  1. CLOZARIL [Suspect]
     Indication: SCHIZOAFFECTIVE DISORDER
     Dosage: 550 MG, DAILY
     Route: 048
     Dates: start: 20020101
  2. VALPROATE SODIUM [Concomitant]
     Indication: SCHIZOAFFECTIVE DISORDER
     Dosage: 1500 MG, DAILY
     Route: 048
     Dates: start: 20020101
  3. LEVOTHYROXINE SODIUM [Concomitant]
     Indication: HYPOTHYROIDISM
     Dosage: 50 UG, DAILY
     Route: 048
     Dates: start: 20020101
  4. OLANZAPINE [Concomitant]
     Dosage: 10 MG, DAILY
     Route: 048
     Dates: start: 20110923

REACTIONS (3)
  - HYPOTHYROIDISM [None]
  - STRESS [None]
  - SCHIZOPHRENIA [None]
